FAERS Safety Report 18571366 (Version 4)
Quarter: 2021Q1

REPORT INFORMATION
  Report Type: Report from Study
  Country: AR (occurrence: AR)
  Receive Date: 20201202
  Receipt Date: 20210122
  Transmission Date: 20210419
  Serious: Yes (Hospitalization, Other)
  Sender: FDA-Public Use
  Company Number: AR-TAKEDA-2020TUS049780

PATIENT
  Age: 24 Year
  Sex: Male
  Weight: 21.7 kg

DRUGS (2)
  1. IDURSULFASE [Suspect]
     Active Substance: IDURSULFASE
     Indication: MUCOPOLYSACCHARIDOSIS II
     Dosage: 6 MILLIGRAM, 1/WEEK
     Route: 050
  2. IDURSULFASE [Suspect]
     Active Substance: IDURSULFASE
     Dosage: 2 DOSAGE FORM
     Route: 065
     Dates: start: 20130101

REACTIONS (6)
  - Oral fungal infection [Unknown]
  - Decubitus ulcer [Recovering/Resolving]
  - Tibia fracture [Unknown]
  - Dehydration [Unknown]
  - Nutritional condition abnormal [Unknown]
  - Fall [Unknown]

NARRATIVE: CASE EVENT DATE: 20201013
